FAERS Safety Report 8237377-5 (Version None)
Quarter: 2012Q1

REPORT INFORMATION
  Report Type: 
  Country: None (occurrence: None)
  Receive Date: 20120323
  Receipt Date: 20120315
  Transmission Date: 20120608
  Serious: Yes (Hospitalization, Other)
  Sender: FDA-Public Use
  Company Number: AUR-APL-2011-04786

PATIENT
  Age: 90 Year
  Sex: Female

DRUGS (7)
  1. RAMIPRIL [Suspect]
     Indication: HYPERTENSION
     Dosage: ORAL
     Route: 048
  2. ASPIRIN [Concomitant]
  3. AMIODARONE HCL [Concomitant]
  4. CITALOPRAM HYDROBROMIDE [Suspect]
     Indication: AFFECTIVE DISORDER
     Dosage: (20 MG), ORAL
     Route: 048
     Dates: start: 20110712, end: 20110715
  5. BISOPROLOL FUMARATE [Concomitant]
  6. LASILIX (FUROSEMIDE) [Suspect]
     Indication: HYPERTENSION
  7. ESOMEPRAZOLE MAGNESIUM [Suspect]
     Indication: GASTROOESOPHAGEAL REFLUX DISEASE
     Dosage: ORAL
     Route: 048

REACTIONS (12)
  - ABDOMINAL DISTENSION [None]
  - INAPPROPRIATE ANTIDIURETIC HORMONE SECRETION [None]
  - AFFECTIVE DISORDER [None]
  - BLOOD PRESSURE SYSTOLIC INCREASED [None]
  - FLATULENCE [None]
  - FOOD AVERSION [None]
  - LYMPHADENOPATHY [None]
  - DECREASED APPETITE [None]
  - DYSPEPSIA [None]
  - RENAL FAILURE [None]
  - NAUSEA [None]
  - HYPONATRAEMIA [None]
